FAERS Safety Report 6755598-5 (Version None)
Quarter: 2010Q2

REPORT INFORMATION
  Report Type: 
  Country: None (occurrence: None)
  Receive Date: 20100604
  Receipt Date: 20100524
  Transmission Date: 20101027
  Serious: Yes (Disabling)
  Sender: FDA-Public Use
  Company Number: PHEH2010US03228

PATIENT
  Sex: Female
  Weight: 64.853 kg

DRUGS (5)
  1. RECLAST [Suspect]
     Indication: OSTEOPOROSIS
     Dosage: 5 MG/100ML
     Route: 042
     Dates: start: 20090122
  2. PREMARIN [Concomitant]
     Indication: MENOPAUSE
     Dosage: 0.9 MG, QD
     Route: 048
     Dates: start: 20051031
  3. LEXAPRO [Concomitant]
     Indication: ANXIETY
     Dosage: 10 MG, QD
     Route: 048
     Dates: start: 20070621
  4. NEXIUM [Concomitant]
     Indication: GASTROOESOPHAGEAL REFLUX DISEASE
     Dosage: 40 MG, QD
     Route: 048
     Dates: start: 20070828
  5. FORTICAL [Concomitant]
     Indication: OSTEOPOROSIS
     Dosage: 200 UNK, QD
     Route: 045
     Dates: start: 20051031

REACTIONS (4)
  - AMNESIA [None]
  - ARTHRALGIA [None]
  - HEADACHE [None]
  - PAIN [None]
